FAERS Safety Report 14968635 (Version 3)
Quarter: 2018Q4

REPORT INFORMATION
  Report Type: Spontaneous
  Country: FR (occurrence: FR)
  Receive Date: 20180604
  Receipt Date: 20181114
  Transmission Date: 20190204
  Serious: Yes (Death, Hospitalization)
  Sender: FDA-Public Use
  Company Number: FR-TEVA-2018-FR-901056

PATIENT
  Age: 62 Year
  Sex: Female
  Weight: 76 kg

DRUGS (1)
  1. METHOTREXATE MYLAN [Suspect]
     Active Substance: METHOTREXATE SODIUM
     Indication: B-CELL LYMPHOMA
     Route: 042
     Dates: start: 20180207, end: 20180207

REACTIONS (5)
  - Acute kidney injury [Fatal]
  - Overdose [Fatal]
  - Bone marrow failure [Fatal]
  - Chemotherapeutic drug level above therapeutic [Fatal]
  - Jaundice cholestatic [Fatal]

NARRATIVE: CASE EVENT DATE: 20180208
